FAERS Safety Report 13790482 (Version 1)
Quarter: 2017Q3

REPORT INFORMATION
  Report Type: Report from Study
  Country: US (occurrence: US)
  Receive Date: 20170725
  Receipt Date: 20170725
  Transmission Date: 20171127
  Serious: Yes (Death, Other)
  Sender: FDA-Public Use
  Company Number: US-IPSEN BIOPHARMACEUTICALS, INC.-2016-11095

PATIENT
  Age: 64 Year
  Sex: Female
  Weight: 47.17 kg

DRUGS (9)
  1. MARINOL [Suspect]
     Active Substance: DRONABINOL
     Indication: PRODUCT USED FOR UNKNOWN INDICATION
  2. ZOFRAN [Concomitant]
     Active Substance: ONDANSETRON HYDROCHLORIDE
     Route: 048
  3. KLOR-CON M20 [Concomitant]
     Active Substance: POTASSIUM CHLORIDE
     Route: 048
  4. PRILOSEC [Concomitant]
     Active Substance: OMEPRAZOLE MAGNESIUM
     Route: 048
  5. VITAMIN D [Concomitant]
     Active Substance: CHOLECALCIFEROL
     Route: 048
  6. OXYCODONE HYDROCHLORIDE. [Concomitant]
     Active Substance: OXYCODONE HYDROCHLORIDE
     Route: 048
  7. SOMATULINE DEPOT [Suspect]
     Active Substance: LANREOTIDE ACETATE
     Indication: METASTATIC CARCINOID TUMOUR
     Dosage: 120 MG
     Route: 058
     Dates: start: 20150604
  8. ACYCLOVIR. [Concomitant]
     Active Substance: ACYCLOVIR
     Route: 048
  9. TERASPHERE [Concomitant]
     Indication: RADIOEMBOLISATION
     Dates: start: 20151230

REACTIONS (11)
  - Ascites [Unknown]
  - Metastatic neoplasm [Unknown]
  - Weight decreased [Unknown]
  - Abdominal distension [Unknown]
  - Eating disorder [Unknown]
  - Fatigue [Unknown]
  - Neoplasm progression [Fatal]
  - Cachexia [Unknown]
  - Abdominal pain [Unknown]
  - Liver injury [Unknown]
  - Asthenia [Unknown]

NARRATIVE: CASE EVENT DATE: 20160330
